FAERS Safety Report 5095901-8 (Version None)
Quarter: 2006Q3

REPORT INFORMATION
  Report Type: 
  Country: None (occurrence: None)
  Receive Date: 20060905
  Receipt Date: 20060727
  Transmission Date: 20061208
  Serious: Yes (Other)
  Sender: FDA-Public Use
  Company Number: PHHO2006BE12431

PATIENT
  Age: 51 Year
  Sex: Female
  Weight: 58 kg

DRUGS (2)
  1. FEMARA [Suspect]
     Indication: BREAST CANCER
     Dosage: 2.5 MG, QD
     Route: 048
     Dates: start: 20040310, end: 20060803
  2. ZOLEDRONIC ACID [Concomitant]
     Dosage: EVERY 6 MONTHS
     Dates: start: 20030611

REACTIONS (2)
  - LOCAL SWELLING [None]
  - SOFT TISSUE DISORDER [None]
